FAERS Safety Report 17600800 (Version 1)
Quarter: 2020Q1

REPORT INFORMATION
  Report Type: Report from Study
  Country: US (occurrence: US)
  Receive Date: 20200330
  Receipt Date: 20200330
  Transmission Date: 20200409
  Serious: Yes (Death, Other)
  Sender: FDA-Public Use
  Company Number: US-JNJFOC-NSADSS2002024043

PATIENT
  Age: 17 Year
  Sex: Male
  Weight: 34.05 kg

DRUGS (13)
  1. LEVETIRACETAM. [Concomitant]
     Active Substance: LEVETIRACETAM
  2. DIAZEPAM. [Concomitant]
     Active Substance: DIAZEPAM
  3. PREDNISONE. [Concomitant]
     Active Substance: PREDNISONE
  4. TOBRAMYCIN. [Concomitant]
     Active Substance: TOBRAMYCIN
  5. PHENOBARBITAL. [Concomitant]
     Active Substance: PHENOBARBITAL
  6. LEVALBUTEROL. [Concomitant]
     Active Substance: LEVALBUTEROL
  7. SUCRALFATE. [Concomitant]
     Active Substance: SUCRALFATE
  8. CISAPRIDE [Suspect]
     Active Substance: CISAPRIDE
     Indication: GASTROOESOPHAGEAL REFLUX DISEASE
     Dosage: GASTROENTERAL USE
     Route: 050
     Dates: start: 200009, end: 20020715
  9. ZONISAMIDE. [Concomitant]
     Active Substance: ZONISAMIDE
  10. AZATHIOPRINE. [Concomitant]
     Active Substance: AZATHIOPRINE
  11. CHORAL HYDRATE [Concomitant]
  12. LORAZEPAM. [Concomitant]
     Active Substance: LORAZEPAM
  13. CROMOLYN SODIUM. [Concomitant]
     Active Substance: CROMOLYN SODIUM

REACTIONS (3)
  - Femur fracture [Unknown]
  - Seizure [Fatal]
  - Respiratory distress [Fatal]

NARRATIVE: CASE EVENT DATE: 20020714
